FAERS Safety Report 10034625 (Version 1)
Quarter: 2014Q1

REPORT INFORMATION
  Report Type: Spontaneous
  Country: GB (occurrence: None)
  Receive Date: 20140321
  Receipt Date: 20140321
  Transmission Date: 20141002
  Serious: Yes (Hospitalization)
  Sender: FDA-Public Use
  Company Number: AUR-APL-2014-02955

PATIENT
  Age: 59 Year
  Sex: Female

DRUGS (10)
  1. METFORMIN (METFORMIN) [Suspect]
     Indication: DIABETES MELLITUS
     Dosage: 3 GM (1 GM, 3 IN 1 D), ORAL
     Route: 048
  2. DICLOFENAC (DICLOFENAC) [Suspect]
     Indication: ABDOMINAL PAIN
     Route: 030
  3. AMLODIPINE [Concomitant]
  4. BENDROFLUMETHIAZIDE [Concomitant]
  5. CO-PROXAMOL (APOREX) [Concomitant]
  6. LEVEMIR (INSULIN DETEMIR) [Concomitant]
  7. NOVORAPID (INSULIN ASPART) [Concomitant]
  8. OMEPRAZOLE [Concomitant]
  9. PAROXETINE [Concomitant]
  10. SIMVASTATIN [Concomitant]

REACTIONS (3)
  - Renal failure acute [None]
  - Lactic acidosis [None]
  - Dialysis [None]
